FAERS Safety Report 18585038 (Version 1)
Quarter: 2020Q4

REPORT INFORMATION
  Report Type: Report from Study
  Country: US (occurrence: US)
  Receive Date: 20201207
  Receipt Date: 20201207
  Transmission Date: 20210114
  Serious: Yes (Hospitalization)
  Sender: FDA-Public Use
  Company Number: US-ALNYLAM PHARMACEUTICALS, INC.-ALN-2020-002303

PATIENT

DRUGS (1)
  1. ONPATTRO [Suspect]
     Active Substance: PATISIRAN SODIUM
     Indication: HEREDITARY NEUROPATHIC AMYLOIDOSIS
     Dosage: UNK
     Route: 042
     Dates: start: 20200408

REACTIONS (8)
  - Weight decreased [Unknown]
  - Hospitalisation [Unknown]
  - Atrial fibrillation [Unknown]
  - Flushing [Unknown]
  - Product dose omission issue [Recovered/Resolved]
  - Implantable defibrillator insertion [Unknown]
  - Intentional dose omission [Unknown]
  - Ageusia [Unknown]
